FAERS Safety Report 19069242 (Version 2)
Quarter: 2021Q2

REPORT INFORMATION
  Report Type: Spontaneous
  Country: FR (occurrence: FR)
  Receive Date: 20210329
  Receipt Date: 20210629
  Transmission Date: 20210717
  Serious: Yes (Other)
  Sender: FDA-Public Use
  Company Number: FR-ALSI-2021000032

PATIENT
  Age: 58 Year
  Sex: Female

DRUGS (1)
  1. OXYGEN. [Suspect]
     Active Substance: OXYGEN
     Indication: CEREBROVASCULAR ACCIDENT
     Route: 055
     Dates: start: 20210117, end: 20210117

REACTIONS (4)
  - Anoxia [Recovered/Resolved]
  - Product quality issue [Recovered/Resolved]
  - Accidental underdose [Recovered/Resolved]
  - Product packaging quantity issue [Recovered/Resolved]
